FAERS Safety Report 5793347-8 (Version None)
Quarter: 2008Q2

REPORT INFORMATION
  Report Type: 
  Country: None (occurrence: None)
  Receive Date: 20080627
  Receipt Date: 20080626
  Transmission Date: 20081010
  Serious: Yes (Hospitalization)
  Sender: FDA-Public Use
  Company Number: B0515799A

PATIENT
  Age: 34 Year
  Sex: Male
  Weight: 78 kg

DRUGS (4)
  1. ARRANON [Suspect]
     Dosage: 1500MGM2 PER DAY
     Route: 042
     Dates: start: 20080407, end: 20080407
  2. CYTARABINE [Concomitant]
     Indication: NEOPLASM MALIGNANT
     Route: 042
     Dates: start: 20080321, end: 20080322
  3. ETOPOSIDE [Concomitant]
     Indication: NEOPLASM MALIGNANT
     Route: 042
     Dates: start: 20080320, end: 20080322
  4. ENDOXAN [Concomitant]
     Indication: NEOPLASM MALIGNANT
     Route: 048
     Dates: start: 20080320, end: 20080320

REACTIONS (1)
  - SUPRAVENTRICULAR TACHYCARDIA [None]
